FAERS Safety Report 21448874 (Version 1)
Quarter: 2022Q4

REPORT INFORMATION
  Report Type: Spontaneous
  Country: CL (occurrence: CL)
  Receive Date: 20221013
  Receipt Date: 20221013
  Transmission Date: 20230112
  Serious: Yes (Death, Hospitalization, Other)
  Sender: FDA-Public Use
  Company Number: CL-BAXTER-2022BAX021168

PATIENT
  Age: 42 Year
  Sex: Female
  Weight: 40 kg

DRUGS (1)
  1. DIANEAL PD-2 WITH DEXTROSE [Suspect]
     Active Substance: CALCIUM CHLORIDE\DEXTROSE\MAGNESIUM CHLORIDE\SODIUM CHLORIDE\SODIUM LACTATE
     Indication: Peritoneal dialysis
     Dosage: 1 BAG PER DAY
     Route: 033
     Dates: start: 20220818, end: 20221002

REACTIONS (3)
  - Thrombocytopenia [Fatal]
  - Condition aggravated [Fatal]
  - Systemic lupus erythematosus [Unknown]

NARRATIVE: CASE EVENT DATE: 20220912
